FAERS Safety Report 8605054-4 (Version None)
Quarter: 2012Q3

REPORT INFORMATION
  Report Type: 
  Country: None (occurrence: None)
  Receive Date: 20120820
  Receipt Date: 20120816
  Transmission Date: 20120928
  Serious: Yes (Death)
  Sender: FDA-Public Use
  Company Number: PHHY2012MX071330

PATIENT
  Sex: Female

DRUGS (1)
  1. EXFORGE HCT [Suspect]
     Indication: HYPERTENSION
     Dosage: 1 DF, 1 TABLET (VALSARTAN 320MG, AMLODIPINE 10MG AND HYDROCHLOROTHIAZIDE 25MG) PER DAY
     Route: 048
     Dates: start: 20120602, end: 20120601

REACTIONS (2)
  - DEPRESSION [None]
  - LOCALISED INFECTION [None]
